FAERS Safety Report 10533508 (Version 1)
Quarter: 2014Q4

REPORT INFORMATION
  Report Type: Spontaneous
  Country: US (occurrence: US)
  Receive Date: 20141022
  Receipt Date: 20141022
  Transmission Date: 20150529
  Serious: Yes (Other)
  Sender: FDA-Public Use
  Company Number: US-ELI_LILLY_AND_COMPANY-US201410007198

PATIENT
  Age: 12 Year
  Sex: Female
  Weight: 34.9 kg

DRUGS (2)
  1. SOMATROPIN [Suspect]
     Active Substance: SOMATROPIN
     Indication: GROWTH RETARDATION
     Dosage: 0.36 MG/KG, WEEKLY (1/W)
     Route: 065
  2. ESTRADIOL. [Concomitant]
     Active Substance: ESTRADIOL
     Indication: DELAYED PUBERTY
     Dosage: UNK, UNKNOWN
     Route: 065

REACTIONS (3)
  - Swollen tongue [Unknown]
  - Arthralgia [Recovered/Resolved]
  - Lip swelling [Unknown]
